FAERS Safety Report 7968573-X (Version None)
Quarter: 2011Q4

REPORT INFORMATION
  Report Type: 
  Country: None (occurrence: None)
  Receive Date: 20111209
  Receipt Date: 20111205
  Transmission Date: 20120403
  Serious: Yes (Disabling)
  Sender: FDA-Public Use
  Company Number: US-MERCK-1112USA00797

PATIENT
  Age: 73 Year
  Sex: Female

DRUGS (6)
  1. FOSAMAX [Suspect]
     Indication: OSTEOPOROSIS PROPHYLAXIS
     Route: 048
     Dates: start: 19950101, end: 20080101
  2. ALENDRONATE SODIUM [Suspect]
     Indication: OSTEOPOROSIS
     Route: 065
     Dates: start: 20080201, end: 20080101
  3. FOSAMAX [Suspect]
     Route: 048
     Dates: start: 20080201, end: 20080101
  4. ALENDRONATE SODIUM [Suspect]
     Indication: OSTEOPOROSIS PROPHYLAXIS
     Route: 065
     Dates: start: 20080201, end: 20080101
  5. FOSAMAX [Suspect]
     Route: 048
     Dates: start: 20080201, end: 20080101
  6. FOSAMAX [Suspect]
     Indication: OSTEOPOROSIS
     Route: 048
     Dates: start: 19950101, end: 20080101

REACTIONS (2)
  - FEMUR FRACTURE [None]
  - LOW TURNOVER OSTEOPATHY [None]
